FAERS Safety Report 4516379-6 (Version None)
Quarter: 2004Q4

REPORT INFORMATION
  Report Type: 
  Country: None (occurrence: None)
  Receive Date: 20041202
  Receipt Date: 20040902
  Transmission Date: 20050328
  Serious: No
  Sender: FDA-Public Use
  Company Number: US-GLAXOSMITHKLINE-A0524511A

PATIENT
  Age: 14 Month
  Sex: Female

DRUGS (1)
  1. AUGMENTIN ES-600 [Suspect]
     Indication: EAR INFECTION
     Route: 048

REACTIONS (2)
  - DRUG INEFFECTIVE [None]
  - MEDICATION ERROR [None]
